FAERS Safety Report 20110350 (Version 1)
Quarter: 2021Q4

REPORT INFORMATION
  Report Type: Spontaneous
  Country: US (occurrence: None)
  Receive Date: 20211124
  Receipt Date: 20211124
  Transmission Date: 20220303
  Serious: No
  Sender: FDA-Public Use
  Company Number: None

PATIENT

DRUGS (2)
  1. FERRIC CARBOXYMALTOSE [Suspect]
     Active Substance: FERRIC CARBOXYMALTOSE
  2. FERRIC GLUCONATE TRIHYDRATE [Suspect]
     Active Substance: FERRIC GLUCONATE TRIHYDRATE

REACTIONS (6)
  - Product storage error [None]
  - Product label confusion [None]
  - Product name confusion [None]
  - Product name confusion [None]
  - Product packaging confusion [None]
  - Product dispensing error [None]
